FAERS Safety Report 9932281 (Version 1)
Quarter: 2014Q1

REPORT INFORMATION
  Report Type: Spontaneous
  Country: US (occurrence: None)
  Receive Date: 20140227
  Receipt Date: 20140227
  Transmission Date: 20141002
  Serious: Yes (Life-Threatening, Hospitalization)
  Sender: FDA-Public Use
  Company Number: None

PATIENT
  Age: 43 Year
  Sex: Female
  Weight: 86 kg

DRUGS (2)
  1. ZANAMIVIR [Suspect]
     Indication: H1N1 INFLUENZA
     Route: 042
     Dates: start: 20140123, end: 20140128
  2. ECMO [Concomitant]

REACTIONS (5)
  - Atrial tachycardia [None]
  - Supraventricular tachycardia [None]
  - Cardiac arrest [None]
  - Atrial flutter [None]
  - Labile blood pressure [None]
